FAERS Safety Report 7383187-0 (Version None)
Quarter: 2011Q1

REPORT INFORMATION
  Report Type: 
  Country: None (occurrence: None)
  Receive Date: 20110324
  Receipt Date: 20110324
  Transmission Date: 20110831
  Serious: Yes (Disabling)
  Sender: FDA-Public Use
  Company Number: None

PATIENT
  Sex: Female
  Weight: 68.0396 kg

DRUGS (1)
  1. NITROFURANTOIN [Suspect]
     Dosage: 100 MG TWICE DAILY

REACTIONS (3)
  - PULMONARY FIBROSIS [None]
  - SCAR [None]
  - INTERSTITIAL LUNG DISEASE [None]
